FAERS Safety Report 14830282 (Version 1)
Quarter: 2018Q2

REPORT INFORMATION
  Report Type: Spontaneous
  Country: US (occurrence: US)
  Receive Date: 20180430
  Receipt Date: 20180430
  Transmission Date: 20180711
  Serious: No
  Sender: FDA-Public Use
  Company Number: US-TEIKOKU PHARMA USA-TPU2018-00274

PATIENT
  Sex: Female

DRUGS (2)
  1. LIDODERM [Suspect]
     Active Substance: LIDOCAINE
     Indication: PAIN
  2. LIDODERM [Suspect]
     Active Substance: LIDOCAINE
     Indication: SPINAL FRACTURE

REACTIONS (1)
  - Spinal fracture [Not Recovered/Not Resolved]
